FAERS Safety Report 4594739-5 (Version None)
Quarter: 2005Q1

REPORT INFORMATION
  Report Type: 
  Country: None (occurrence: None)
  Receive Date: 20050301
  Receipt Date: 20050218
  Transmission Date: 20050727
  Serious: Yes (Hospitalization, Other)
  Sender: FDA-Public Use
  Company Number: US-BRISTOL-MYERS SQUIBB COMPANY-12873097

PATIENT
  Age: 63 Year
  Sex: Female

DRUGS (3)
  1. ESTRACE [Suspect]
     Indication: HORMONE REPLACEMENT THERAPY
  2. PROGESTIN INJ [Suspect]
     Indication: HORMONE REPLACEMENT THERAPY
     Dosage: TAKES ON DAYS 17 THROUGH 25 EACH MONTH
  3. LYMPHAZURIN [Suspect]
     Route: 042
     Dates: start: 19990930

REACTIONS (2)
  - ANAPHYLACTIC REACTION [None]
  - BREAST CANCER [None]
